FAERS Safety Report 16670225 (Version 3)
Quarter: 2020Q4

REPORT INFORMATION
  Report Type: Report from Study
  Country: US (occurrence: US)
  Receive Date: 20190805
  Receipt Date: 20201029
  Transmission Date: 20210113
  Serious: Yes (Death, Hospitalization, Other)
  Sender: FDA-Public Use
  Company Number: US-BRISTOL-MYERS SQUIBB COMPANY-BMS-2019-063340

PATIENT
  Age: 37 Year
  Sex: Male
  Weight: 162.4 kg

DRUGS (1)
  1. NIVOLUMAB [Suspect]
     Active Substance: NIVOLUMAB
     Indication: RENAL CELL CARCINOMA
     Dosage: UNK
     Route: 065
     Dates: start: 20190311

REACTIONS (10)
  - Transfusion reaction [Unknown]
  - Sepsis [Unknown]
  - Anaemia [Not Recovered/Not Resolved]
  - Abdominal pain [Not Recovered/Not Resolved]
  - Respiratory failure [Fatal]
  - Hypoglycaemia [Unknown]
  - Hypotension [Unknown]
  - Candida infection [Unknown]
  - Hypercalcaemia [Not Recovered/Not Resolved]
  - Renal tubular necrosis [Unknown]

NARRATIVE: CASE EVENT DATE: 20190621
